FAERS Safety Report 9808093 (Version 3)
Quarter: 2014Q2

REPORT INFORMATION
  Report Type: Spontaneous
  Country: US (occurrence: US)
  Receive Date: 20140110
  Receipt Date: 20140519
  Transmission Date: 20141212
  Serious: Yes (Death)
  Sender: FDA-Public Use
  Company Number: US-PFIZER INC-2014004450

PATIENT
  Age: 49 Year
  Sex: Male
  Weight: 54.98 kg

DRUGS (9)
  1. VFEND [Suspect]
     Indication: ASPERGILLUS INFECTION
     Dosage: 200 MG, 2X/DAY
     Route: 048
     Dates: start: 20130816
  2. XANAX [Concomitant]
     Dosage: 0.25 MG, 2X/DAY
     Route: 048
  3. DEXLANSOPRAZOLE [Concomitant]
     Dosage: 60 MG, DAILY
     Route: 048
  4. LORTAB [Concomitant]
     Dosage: 1 DF, 4X/DAY
     Route: 048
  5. DUO NEBS [Concomitant]
     Dosage: 3 ML, 4X/DAY (TAKE 3 ML BY NEBULIZATION EVERY 6 HOURS AS NEEDED)
  6. NAPROSYN [Concomitant]
     Dosage: 375 MG, 2X/DAY (TAKE 2 TIMES DAILY WITH MEALS)
  7. DELTASONE [Concomitant]
     Dosage: 10 MG, UNK
  8. DELTASONE [Concomitant]
     Dosage: 15 MG, DAILY
     Route: 048
  9. AZULFIDINE [Concomitant]
     Dosage: 500 MG, 2X/DAY
     Route: 048

REACTIONS (2)
  - Lung disorder [Fatal]
  - Disease progression [Fatal]
